FAERS Safety Report 5247965-6 (Version None)
Quarter: 2007Q1

REPORT INFORMATION
  Report Type: 
  Country: None (occurrence: None)
  Receive Date: 20070226
  Receipt Date: 20070226
  Transmission Date: 20070707
  Serious: No
  Sender: FDA-Public Use
  Company Number: None

PATIENT

DRUGS (1)
  1. PROPOFOL [Suspect]
     Indication: ANAESTHESIA
     Dates: start: 20070223, end: 20070223

REACTIONS (2)
  - INADEQUATE ANALGESIA [None]
  - PHARMACEUTICAL PRODUCT COMPLAINT [None]
